FAERS Safety Report 8805113 (Version 1)
Quarter: 2012Q4

REPORT INFORMATION
  Report Type: 
  Country: US (occurrence: US)
  Receive Date: 20120924
  Receipt Date: 20120924
  Transmission Date: 20130627
  Serious: Yes (Hospitalization, Other)
  Sender: FDA-Public Use
  Company Number: US-ELI_LILLY_AND_COMPANY-US201209004787

PATIENT
  Sex: Female

DRUGS (10)
  1. EFFIENT [Suspect]
     Dosage: 2.5 mg, qd
     Dates: start: 201204
  2. INSULIN [Concomitant]
     Dosage: UNK, unknown
     Route: 065
  3. ISOSORBIDE [Concomitant]
     Dosage: UNK, unknown
     Route: 065
  4. METOPROLOL [Concomitant]
     Route: 065
  5. TORSEMIDE [Concomitant]
     Dosage: 20 mg, other
     Route: 065
  6. KLOR-CON [Concomitant]
     Dosage: UNK, other
     Route: 065
  7. RANEXA [Concomitant]
     Dosage: 500 mg, bid
     Route: 065
  8. ASPIRIN [Concomitant]
     Dosage: UNK, unknown
     Route: 065
  9. CALCIUM [Concomitant]
     Dosage: 600 mg, UNK
     Route: 065
  10. VITAMINS [Concomitant]
     Dosage: UNK, qd
     Route: 065

REACTIONS (5)
  - Cardiac pacemaker insertion [Unknown]
  - Loss of consciousness [Unknown]
  - Intentional drug misuse [Unknown]
  - Medication error [Unknown]
  - Incorrect product storage [Unknown]
